FAERS Safety Report 17553377 (Version 1)
Quarter: 2020Q1

REPORT INFORMATION
  Report Type: Report from Study
  Country: CA (occurrence: CA)
  Receive Date: 20200317
  Receipt Date: 20200317
  Transmission Date: 20200409
  Serious: Yes (Other)
  Sender: FDA-Public Use
  Company Number: CA-JNJFOC-20200309388

PATIENT
  Age: 57 Year
  Sex: Female
  Weight: 67.6 kg

DRUGS (3)
  1. REMICADE [Suspect]
     Active Substance: INFLIXIMAB
     Indication: RHEUMATOID ARTHRITIS
     Dosage: LAST INFUSION: 04-MAR-2020
     Route: 042
     Dates: start: 20141216
  2. CHLOROQUINE. [Suspect]
     Active Substance: CHLOROQUINE
     Indication: SYSTEMIC LUPUS ERYTHEMATOSUS
     Route: 065
  3. REMICADE [Suspect]
     Active Substance: INFLIXIMAB
     Indication: COLITIS ULCERATIVE

REACTIONS (9)
  - Mucous stools [Unknown]
  - Insomnia [Unknown]
  - Hyperhidrosis [Recovered/Resolved]
  - Off label use [Unknown]
  - Incorrect drug administration rate [Unknown]
  - Systemic lupus erythematosus [Unknown]
  - Hot flush [Recovered/Resolved]
  - Pain [Not Recovered/Not Resolved]
  - Infusion related reaction [Recovered/Resolved]

NARRATIVE: CASE EVENT DATE: 2019
